FAERS Safety Report 9139418 (Version 1)
Quarter: 2013Q1

REPORT INFORMATION
  Report Type: Spontaneous
  Country: US (occurrence: US)
  Receive Date: 20130305
  Receipt Date: 20130305
  Transmission Date: 20140127
  Serious: Yes (Other)
  Sender: FDA-Public Use
  Company Number: PHEH2013US005228

PATIENT
  Sex: Male

DRUGS (8)
  1. HYDROCHLOROTHIAZIDE,VALSARTAN [Suspect]
     Indication: HYPERTENSION
     Dosage: 1 DF, QD (160 MG OF VALS/12.5 MG OF HYDRO)
  2. NORCO [Concomitant]
  3. XANAX [Concomitant]
  4. DECADRON//DEXAMETHASONE [Concomitant]
  5. RESTORIL [Concomitant]
  6. OSCAL [Concomitant]
  7. PREVACID [Concomitant]
  8. NAPROSYN [Concomitant]

REACTIONS (2)
  - Lung neoplasm malignant [Unknown]
  - Brain neoplasm malignant [Unknown]
